FAERS Safety Report 5984799-9 (Version None)
Quarter: 2008Q4

REPORT INFORMATION
  Report Type: 
  Country: None (occurrence: None)
  Receive Date: 20081202
  Receipt Date: 20081124
  Transmission Date: 20090506
  Serious: Yes (Death)
  Sender: FDA-Public Use
  Company Number: SPV1-2008-02593

PATIENT
  Age: 42 Year
  Sex: Female

DRUGS (1)
  1. FOSRENOL [Suspect]
     Dates: start: 20081113

REACTIONS (2)
  - SUDDEN DEATH [None]
  - VOMITING [None]
